FAERS Safety Report 5193525-5 (Version None)
Quarter: 2006Q4

REPORT INFORMATION
  Report Type: 
  Country: None (occurrence: None)
  Receive Date: 20061228
  Receipt Date: 20060622
  Transmission Date: 20070319
  Serious: No
  Sender: FDA-Public Use
  Company Number: PAR-3997-AE

PATIENT
  Sex: Male

DRUGS (2)
  1. FLUTICASONE PROPIONATE [Suspect]
     Indication: MULTIPLE ALLERGIES
     Dosage: 2SPR PER DAY
     Route: 045
     Dates: start: 20060523, end: 20060619
  2. CELEBREX [Concomitant]
     Indication: ARTHRITIS

REACTIONS (2)
  - ANOSMIA [None]
  - PHARMACEUTICAL PRODUCT COMPLAINT [None]
